FAERS Safety Report 8575278-3 (Version None)
Quarter: 2012Q3

REPORT INFORMATION
  Report Type: 
  Country: None (occurrence: None)
  Receive Date: 20120807
  Receipt Date: 20111012
  Transmission Date: 20120928
  Serious: Yes (Death, Other)
  Sender: FDA-Public Use
  Company Number: DE-CELGENEUS-062-50794-12053183

PATIENT
  Age: 62 Year
  Sex: Male
  Weight: 90 kg

DRUGS (2)
  1. VIDAZA [Suspect]
     Route: 058
     Dates: start: 20110808, end: 20110816
  2. GRANOCYT [Concomitant]
     Route: 065
     Dates: start: 20110829

REACTIONS (8)
  - ASTHENIA [None]
  - MYELODYSPLASTIC SYNDROME [None]
  - NAUSEA [None]
  - WHITE BLOOD CELL COUNT DECREASED [None]
  - GRANULOCYTE COUNT DECREASED [None]
  - VERTIGO [None]
  - HAEMOGLOBIN DECREASED [None]
  - PLATELET COUNT DECREASED [None]
